FAERS Safety Report 4512262-0 (Version None)
Quarter: 2004Q4

REPORT INFORMATION
  Report Type: 
  Country: None (occurrence: None)
  Receive Date: 20041123
  Receipt Date: 20041111
  Transmission Date: 20050328
  Serious: Yes (Life-Threatening, Hospitalization)
  Sender: FDA-Public Use
  Company Number: 04H-062-0280718-00

PATIENT
  Age: 74 Year
  Sex: Female

DRUGS (1)
  1. HEPARIN SODIUM [Suspect]
     Indication: ANTICOAGULANT THERAPY
     Dosage: 5000 IE, THREE TIMES DAILY

REACTIONS (11)
  - ABDOMINAL DISTENSION [None]
  - AORTIC THROMBOSIS [None]
  - ATRIAL FIBRILLATION [None]
  - CARDIOPULMONARY FAILURE [None]
  - DIARRHOEA [None]
  - HEPARIN-INDUCED THROMBOCYTOPENIA [None]
  - HYPOTENSION [None]
  - ILIAC ARTERY THROMBOSIS [None]
  - MESENTERIC OCCLUSION [None]
  - TACHYCARDIA [None]
  - VOMITING [None]
